FAERS Safety Report 6181917-7 (Version None)
Quarter: 2009Q2

REPORT INFORMATION
  Report Type: 
  Country: None (occurrence: None)
  Receive Date: 20090505
  Receipt Date: 20090420
  Transmission Date: 20091009
  Serious: Yes (Hospitalization)
  Sender: FDA-Public Use
  Company Number: 2009001213

PATIENT
  Age: 69 Year
  Sex: Male

DRUGS (1)
  1. TARCEVA [Suspect]
     Indication: LUNG NEOPLASM MALIGNANT
     Dosage: (150 MG, QD), ORAL
     Route: 048
     Dates: start: 20090319

REACTIONS (1)
  - CAROTID ARTERY STENOSIS [None]
